FAERS Safety Report 12167895 (Version 1)
Quarter: 2016Q1

REPORT INFORMATION
  Report Type: Spontaneous
  Country: US (occurrence: US)
  Receive Date: 20160310
  Receipt Date: 20160310
  Transmission Date: 20160526
  Serious: Yes (Other)
  Sender: FDA-Public Use
  Company Number: US-PROCTER_AND_GAMBLE-GS16027879

PATIENT
  Age: 51 Year
  Sex: Female

DRUGS (1)
  1. ZZZQUIL NIGHTTIME SLEEP-AID [Suspect]
     Active Substance: DIPHENHYDRAMINE HYDROCHLORIDE
     Dosage: 2 LIQCAP, 1 ONLY
     Route: 048
     Dates: start: 20160301, end: 20160301

REACTIONS (5)
  - Screaming [Recovered/Resolved]
  - Memory impairment [Unknown]
  - Loss of consciousness [Recovered/Resolved]
  - Scratch [Unknown]
  - Abnormal sleep-related event [Recovered/Resolved]

NARRATIVE: CASE EVENT DATE: 201603
